FAERS Safety Report 9397717 (Version 2)
Quarter: 2013Q3

REPORT INFORMATION
  Report Type: Report from Study
  Country: FR (occurrence: FR)
  Receive Date: 20130712
  Receipt Date: 20130722
  Transmission Date: 20140515
  Serious: Yes (Death, Hospitalization)
  Sender: FDA-Public Use
  Company Number: FR-ASTELLAS-2013EU005754

PATIENT
  Sex: Male
  Weight: 74 kg

DRUGS (3)
  1. ENZALUTAMIDE [Suspect]
     Indication: PROSTATE CANCER
     Dosage: 160 MG, UNKNOWN/D
     Route: 048
     Dates: start: 20130604, end: 20130619
  2. ENDOXAN                            /00021101/ [Concomitant]
     Indication: PROSTATE CANCER
     Dosage: 50 MG, UNKNOWN/D
     Route: 048
     Dates: end: 20130601
  3. PREDNISONE [Concomitant]
     Indication: PROSTATE CANCER
     Dosage: 10 MG, UNKNOWN/D
     Route: 048
     Dates: end: 20130619

REACTIONS (2)
  - Malignant neoplasm progression [Fatal]
  - Interstitial lung disease [Unknown]
